FAERS Safety Report 8386840-5 (Version None)
Quarter: 2012Q2

REPORT INFORMATION
  Report Type: 
  Country: None (occurrence: None)
  Receive Date: 20120525
  Receipt Date: 20120521
  Transmission Date: 20120825
  Serious: Yes (Death, Other)
  Sender: FDA-Public Use
  Company Number: FR-PFIZER INC-A02200901525

PATIENT
  Age: 70 Year
  Sex: Male

DRUGS (12)
  1. PRIMPERAN TAB [Suspect]
     Indication: PREMEDICATION
     Dosage: UNK
     Route: 042
     Dates: start: 20081104, end: 20081104
  2. AVASTIN [Suspect]
     Indication: COLON CANCER METASTATIC
     Dosage: UNK
     Route: 042
     Dates: start: 20081106, end: 20081106
  3. ZOFRAN [Suspect]
     Indication: PREMEDICATION
     Dosage: UNK
     Route: 042
     Dates: start: 20081104, end: 20081104
  4. LEVOFLOXACIN [Concomitant]
     Dosage: UNK
  5. ACUPAN [Suspect]
     Dosage: 3 DF, UNK
     Route: 042
     Dates: start: 20081104
  6. AUGMENTIN '125' [Concomitant]
     Dosage: UNK
  7. ALFUZOSIN HCL [Concomitant]
  8. SOLU-MEDROL [Suspect]
     Indication: PREMEDICATION
     Dosage: UNK, OTHER
     Route: 042
     Dates: start: 20081104, end: 20081104
  9. ELOXATIN [Suspect]
     Indication: COLON CANCER METASTATIC
     Dosage: 150 MG
     Route: 042
     Dates: start: 20081104, end: 20081104
  10. LASIX [Concomitant]
     Dosage: UNK
  11. NEXIUM [Concomitant]
     Dosage: UNK
  12. FLUOROURACIL [Suspect]
     Indication: COLON CANCER METASTATIC
     Dosage: UNK
     Route: 042
     Dates: start: 20081104, end: 20081105

REACTIONS (8)
  - PATHOGEN RESISTANCE [None]
  - NEOPLASM PROGRESSION [None]
  - ANGINA PECTORIS [None]
  - TROPONIN INCREASED [None]
  - COLON CANCER METASTATIC [None]
  - DYSPNOEA [None]
  - MYOCARDIAL INFARCTION [None]
  - BLOOD CREATINE PHOSPHOKINASE INCREASED [None]
